FAERS Safety Report 7080019-5 (Version None)
Quarter: 2010Q4

REPORT INFORMATION
  Report Type: 
  Country: None (occurrence: None)
  Receive Date: 20101102
  Receipt Date: 20100518
  Transmission Date: 20110411
  Serious: No
  Sender: FDA-Public Use
  Company Number: US-ABBOTT-10P-163-0646619-00

PATIENT
  Sex: Male
  Weight: 65.83 kg

DRUGS (3)
  1. BIAXIN [Suspect]
     Indication: HELICOBACTER INFECTION
     Dates: start: 19990101, end: 20040101
  2. CIPRO [Suspect]
     Indication: HELICOBACTER INFECTION
     Dates: start: 19990101
  3. FLAGYL [Suspect]
     Indication: HELICOBACTER INFECTION

REACTIONS (2)
  - CANDIDIASIS [None]
  - DRUG INEFFECTIVE [None]
